FAERS Safety Report 14348221 (Version 2)
Quarter: 2018Q4

REPORT INFORMATION
  Report Type: Report from Study
  Country: CA (occurrence: CA)
  Receive Date: 20180103
  Receipt Date: 20181002
  Transmission Date: 20190204
  Serious: Yes (Hospitalization)
  Sender: FDA-Public Use
  Company Number: CA-GLAXOSMITHKLINE-CA2017GSK202381

PATIENT
  Age: 70 Year
  Sex: Female

DRUGS (2)
  1. SALBUTAMOL SULPHATE [Suspect]
     Active Substance: ALBUTEROL SULFATE
     Indication: PRODUCT USED FOR UNKNOWN INDICATION
     Dosage: UNK
     Dates: start: 2010
  2. NUCALA [Suspect]
     Active Substance: MEPOLIZUMAB
     Indication: ASTHMA
     Dosage: 100 MG, Z
     Route: 042

REACTIONS (11)
  - Asthma [Unknown]
  - Frustration tolerance decreased [Unknown]
  - Insomnia [Recovering/Resolving]
  - Wheezing [Unknown]
  - Sleep disorder [Recovering/Resolving]
  - Dyspnoea [Unknown]
  - Loss of personal independence in daily activities [Unknown]
  - Throat clearing [Unknown]
  - Chest discomfort [Unknown]
  - Cough [Recovering/Resolving]
  - Discomfort [Unknown]

NARRATIVE: CASE EVENT DATE: 201712
